FAERS Safety Report 6379295-3 (Version None)
Quarter: 2009Q3

REPORT INFORMATION
  Report Type: 
  Country: None (occurrence: None)
  Receive Date: 20090923
  Receipt Date: 20090923
  Transmission Date: 20100115
  Serious: Yes (Life-Threatening)
  Sender: FDA-Public Use
  Company Number: None

PATIENT
  Age: 63 Year
  Sex: Male
  Weight: 82 kg

DRUGS (8)
  1. LIDOCAINE [Suspect]
     Indication: CARDIAC ARREST
     Dosage: 100MG IV + 3 MG/MIN INJ
     Route: 042
     Dates: start: 20090529, end: 20090530
  2. AMIODARONE [Concomitant]
  3. PANTOPRAZOLE SODIUM [Concomitant]
  4. ASPIRIN [Concomitant]
  5. DIAZEPAM [Concomitant]
  6. ENALAPRIL MALEATE [Concomitant]
  7. HYDROMORPHONE [Concomitant]
  8. METOPROLOL [Concomitant]

REACTIONS (4)
  - DRUG LEVEL INCREASED [None]
  - DRUG TOXICITY [None]
  - HYPOTENSION [None]
  - LETHARGY [None]
